FAERS Safety Report 21598049 (Version 1)
Quarter: 2022Q4

REPORT INFORMATION
  Report Type: Spontaneous
  Country: GB (occurrence: GB)
  Receive Date: 20221115
  Receipt Date: 20221115
  Transmission Date: 20230113
  Serious: Yes (Death, Life-Threatening, Hospitalization, Disabling, Other)
  Sender: FDA-Public Use
  Company Number: None

PATIENT
  Age: 76 Year
  Sex: Male
  Weight: 69 kg

DRUGS (37)
  1. TACROLIMUS [Suspect]
     Active Substance: TACROLIMUS
     Dosage: 2 MG, BID
     Route: 048
     Dates: start: 20180128
  2. TACROLIMUS [Suspect]
     Active Substance: TACROLIMUS
     Dosage: 2 UNK
     Route: 048
     Dates: start: 20180128, end: 20180130
  3. TACROLIMUS [Suspect]
     Active Substance: TACROLIMUS
     Dosage: 15 MG, BID
  4. TACROLIMUS [Suspect]
     Active Substance: TACROLIMUS
     Dosage: 4 MG, QD
     Route: 048
     Dates: start: 20180128
  5. TACROLIMUS [Suspect]
     Active Substance: TACROLIMUS
     Indication: Product used for unknown indication
     Dosage: 1.5 MG, BID
     Route: 048
     Dates: start: 20180127, end: 20180130
  6. TACROLIMUS [Suspect]
     Active Substance: TACROLIMUS
     Indication: Prophylaxis against transplant rejection
     Dosage: 30 MG, QD
     Route: 048
     Dates: start: 20180127
  7. TACROLIMUS [Suspect]
     Active Substance: TACROLIMUS
     Indication: Renal transplant
     Dosage: 3 UNK
     Route: 048
     Dates: start: 20100127, end: 20180130
  8. ALFACALCIDOL [Suspect]
     Active Substance: ALFACALCIDOL
     Dosage: 500 NANOGRAM, QD
     Route: 048
  9. ALFACALCIDOL [Suspect]
     Active Substance: ALFACALCIDOL
     Indication: Product used for unknown indication
     Dosage: 500 NANOGRAM, QD
     Route: 048
  10. BISOPROLOL [Suspect]
     Active Substance: BISOPROLOL
     Indication: Product used for unknown indication
     Dosage: UNK
  11. CEFUROXIME [Suspect]
     Active Substance: CEFUROXIME
     Indication: Product used for unknown indication
     Dosage: UNK
     Dates: start: 20180131
  12. CLARITHROMYCIN [Suspect]
     Active Substance: CLARITHROMYCIN
     Indication: Mediastinitis
  13. CLARITHROMYCIN [Suspect]
     Active Substance: CLARITHROMYCIN
     Indication: Lower respiratory tract infection
  14. CLARITHROMYCIN [Suspect]
     Active Substance: CLARITHROMYCIN
     Indication: Pneumonia
     Dosage: 500 MILLIGRAM, QD
     Route: 042
     Dates: start: 20180127, end: 20180131
  15. DOXYCYCLINE [Suspect]
     Active Substance: DOXYCYCLINE
     Indication: Product used for unknown indication
     Dosage: UNK
  16. ENVARSUS XR [Suspect]
     Active Substance: TACROLIMUS
     Indication: Prophylaxis against transplant rejection
     Dosage: 1.5 MG, BID
     Route: 048
     Dates: start: 20180127, end: 20180131
  17. ENVARSUS XR [Suspect]
     Active Substance: TACROLIMUS
     Indication: Product used for unknown indication
     Dosage: 27 MG
  18. EPLERENONE [Suspect]
     Active Substance: EPLERENONE
     Indication: Product used for unknown indication
     Dosage: 25 MG MONTHLY
     Route: 048
     Dates: start: 20180130
  19. DEXTROSE [Suspect]
     Active Substance: DEXTROSE
     Indication: Product used for unknown indication
     Dosage: UNK
  20. DEXTROSE [Suspect]
     Active Substance: DEXTROSE
     Dosage: UNK
     Dates: start: 20180130
  21. GLUCAGON [Suspect]
     Active Substance: GLUCAGON
     Indication: Product used for unknown indication
     Dosage: UNK
     Route: 030
     Dates: start: 20180130
  22. NITROGLYCERIN [Suspect]
     Active Substance: NITROGLYCERIN
     Indication: Product used for unknown indication
     Dosage: 50 MG, TID
  23. HYDROCORTISONE [Suspect]
     Active Substance: HYDROCORTISONE
     Indication: Product used for unknown indication
     Dosage: 50 MG, TID
     Route: 042
  24. NITROGLYCERIN [Suspect]
     Active Substance: NITROGLYCERIN
     Indication: Product used for unknown indication
     Dosage: UNK
  25. OMEPRAZOLE [Suspect]
     Active Substance: OMEPRAZOLE
     Indication: Product used for unknown indication
     Dosage: 20 MG, QD, OMEPRAZOLE CHEMO IBERICA
  26. OMEPRAZOLE [Suspect]
     Active Substance: OMEPRAZOLE
     Indication: Duodenal ulcer
  27. PREDNISOLONE [Suspect]
     Active Substance: PREDNISOLONE
     Indication: Product used for unknown indication
     Dosage: 5 MG, QMO (INCREASE PREDNISOLONE TO 10 MG FOR 5
     Route: 048
     Dates: start: 20180127
  28. SENNOSIDES A AND B [Suspect]
     Active Substance: SENNOSIDES A AND B
     Indication: Product used for unknown indication
     Dosage: UNK
  29. ALLOPURINOL [Concomitant]
     Active Substance: ALLOPURINOL
     Indication: Product used for unknown indication
     Dosage: 100 MG, QD
     Route: 048
  30. BETAHISTINE [Concomitant]
     Active Substance: BETAHISTINE
     Indication: Product used for unknown indication
     Dosage: 8 MG, QD (EVERY MORNING)
  31. CALCIUM CARBONATE [Concomitant]
     Active Substance: CALCIUM CARBONATE
     Indication: Product used for unknown indication
     Dosage: UNK
     Route: 048
  32. CHOLECALCIFEROL [Concomitant]
     Active Substance: CHOLECALCIFEROL
     Indication: Product used for unknown indication
     Dosage: 20 NANOGRAM, MORNING, QD (MONTHLY)
     Route: 048
  33. FUROSEMIDE [Concomitant]
     Active Substance: FUROSEMIDE
     Indication: Product used for unknown indication
     Dosage: 40 MG, UNK 12 PM
     Route: 048
  34. FUROSEMIDE [Concomitant]
     Active Substance: FUROSEMIDE
     Dosage: 80MG MORNING, 40MG 12PM
     Route: 048
     Dates: start: 20180130
  35. GLICLAZIDE [Concomitant]
     Active Substance: GLICLAZIDE
     Indication: Product used for unknown indication
     Dosage: 40 MG, QD (MONTHLY)
     Route: 048
  36. ALBUTEROL [Concomitant]
     Active Substance: ALBUTEROL
     Indication: Product used for unknown indication
     Dosage: UNK
  37. SENNA [Concomitant]
     Active Substance: SENNA LEAF\SENNOSIDES\SENNOSIDES A AND B
     Indication: Product used for unknown indication
     Dosage: 15 MG, QD (EVERY NIGHT O/A   )
     Route: 048

REACTIONS (34)
  - Immunosuppressant drug level increased [Fatal]
  - Myocardial ischaemia [Fatal]
  - Dyspnoea [Fatal]
  - Multimorbidity [Fatal]
  - Swelling [Fatal]
  - Oesophageal perforation [Fatal]
  - Pneumonia [Fatal]
  - Acute kidney injury [Fatal]
  - Oesophageal carcinoma [Fatal]
  - Sepsis [Fatal]
  - Cardiac failure congestive [Fatal]
  - Drug interaction [Fatal]
  - Drug level increased [Fatal]
  - Lower respiratory tract infection [Fatal]
  - Malaise [Fatal]
  - Ascites [Fatal]
  - Renal impairment [Fatal]
  - Pleural effusion [Fatal]
  - Cardiomegaly [Fatal]
  - Transplant failure [Fatal]
  - Toxicity to various agents [Fatal]
  - Cough [Fatal]
  - Dysphagia [Fatal]
  - Superinfection [Fatal]
  - Rales [Fatal]
  - Soft tissue mass [Fatal]
  - Inflammatory marker increased [Fatal]
  - Lung consolidation [Fatal]
  - Productive cough [Fatal]
  - Pyrexia [Fatal]
  - Rash [Fatal]
  - Hypoglycaemia [Fatal]
  - Labelled drug-drug interaction medication error [Fatal]
  - Haemoptysis [Unknown]

NARRATIVE: CASE EVENT DATE: 20180118
